FAERS Safety Report 9348856 (Version 1)
Quarter: 2013Q2

REPORT INFORMATION
  Report Type: Spontaneous
  Country: US (occurrence: US)
  Receive Date: 20130614
  Receipt Date: 20130614
  Transmission Date: 20140414
  Serious: Yes (Other)
  Sender: FDA-Public Use
  Company Number: US-BAYER-2013-070796

PATIENT
  Age: 29 Year
  Sex: Female
  Weight: 97.96 kg

DRUGS (11)
  1. YAZ [Suspect]
     Indication: CONTRACEPTION
  2. YASMIN [Suspect]
  3. PRENATAL VITAMINS [Concomitant]
     Dosage: UNK
     Route: 048
     Dates: start: 20090909
  4. LORTAB [Concomitant]
  5. ZOFRAN [Concomitant]
  6. DEMEROL [Concomitant]
  7. PHENERGAN [Concomitant]
  8. NITROFURANTOIN [Concomitant]
     Dosage: UNK
     Route: 048
     Dates: start: 20090905
  9. ACETAMINOPHEN W/HYDROCODONE [Concomitant]
     Dosage: 5/500
     Route: 048
     Dates: start: 20090926
  10. HYDROCODONE [Concomitant]
     Dosage: 7.5 MG, UNK
     Dates: start: 20090915
  11. ORTHO TRI-CYCLEN [Concomitant]

REACTIONS (1)
  - Cholecystitis chronic [None]
